FAERS Safety Report 6977412-5 (Version None)
Quarter: 2010Q3

REPORT INFORMATION
  Report Type: 
  Country: None (occurrence: None)
  Receive Date: 20100910
  Receipt Date: 20100901
  Transmission Date: 20110219
  Serious: Yes (Hospitalization)
  Sender: FDA-Public Use
  Company Number: FR-ABBOTT-10P-056-0667505-00

PATIENT
  Sex: Male

DRUGS (7)
  1. FENOFIBRATE [Suspect]
     Indication: DYSLIPIDAEMIA
     Route: 048
  2. KIVEXA [Suspect]
     Indication: ACQUIRED IMMUNODEFICIENCY SYNDROME
     Dosage: 600/300MG DAILY DOSE
     Route: 048
     Dates: start: 20090101
  3. SUSTIVA [Suspect]
     Indication: ACQUIRED IMMUNODEFICIENCY SYNDROME
     Dosage: 600MG DAILY DOSE
     Route: 048
     Dates: start: 20040101
  4. CRESTOR [Suspect]
     Indication: DYSLIPIDAEMIA
     Dosage: 5MG DAILY DOSE
     Route: 048
  5. VALSARTAN  AND HYDROCHLOROTHIAZIDE [Suspect]
     Indication: PRODUCT USED FOR UNKNOWN INDICATION
     Dosage: 160/25MG DAILY DOSE
     Route: 048
  6. LERCANIDIPINE [Suspect]
     Indication: PRODUCT USED FOR UNKNOWN INDICATION
     Dosage: 20MG DAILY DOSE
     Route: 048
  7. KARDEGIC [Suspect]
     Indication: PRODUCT USED FOR UNKNOWN INDICATION
     Dosage: 75MG DAILY DOSE
     Route: 048

REACTIONS (3)
  - HAEMATOMA [None]
  - HAEMORRHAGE [None]
  - MYOCARDIAL INFARCTION [None]
